FAERS Safety Report 23484594 (Version 2)
Quarter: 2024Q1

REPORT INFORMATION
  Report Type: Report from Study
  Country: US (occurrence: US)
  Receive Date: 20240206
  Receipt Date: 20240227
  Transmission Date: 20240409
  Serious: Yes (Other)
  Sender: FDA-Public Use
  Company Number: US-ABBVIE-5618423

PATIENT
  Age: 65 Year
  Sex: Female

DRUGS (1)
  1. SKYRIZI [Suspect]
     Active Substance: RISANKIZUMAB-RZAA
     Indication: Psoriasis
     Route: 058
     Dates: start: 20230813

REACTIONS (14)
  - Cholecystectomy [Unknown]
  - Surgery [Unknown]
  - Eye degenerative disorder [Not Recovered/Not Resolved]
  - Illness [Unknown]
  - Psoriasis [Unknown]
  - Knee arthroplasty [Unknown]
  - Skin haemorrhage [Unknown]
  - Intervertebral disc protrusion [Recovered/Resolved]
  - Insomnia [Unknown]
  - Multiple allergies [Unknown]
  - Dehydration [Unknown]
  - Sinusitis [Unknown]
  - Muscle spasms [Unknown]
  - Ear congestion [Unknown]

NARRATIVE: CASE EVENT DATE: 20231201
